FAERS Safety Report 16919694 (Version 1)
Quarter: 2019Q4

REPORT INFORMATION
  Report Type: Spontaneous
  Country: US (occurrence: US)
  Receive Date: 20191015
  Receipt Date: 20191015
  Transmission Date: 20200122
  Serious: No
  Sender: FDA-Public Use
  Company Number: US-PERRIGO-19US007053

PATIENT
  Age: 25 Year
  Sex: Male
  Weight: 104.31 kg

DRUGS (1)
  1. NICOTINE POLACRILEX [Suspect]
     Active Substance: NICOTINE
     Indication: SMOKING CESSATION THERAPY
     Dosage: 4 MG, 6 TO 7 TIMES QD
     Route: 002
     Dates: start: 20190522

REACTIONS (1)
  - Saliva discolouration [Unknown]

NARRATIVE: CASE EVENT DATE: 20190602
